FAERS Safety Report 9332469 (Version 4)
Quarter: 2014Q1

REPORT INFORMATION
  Report Type: Report from Study
  Country: GB (occurrence: GB)
  Receive Date: 20130606
  Receipt Date: 20140118
  Transmission Date: 20141002
  Serious: Yes (Hospitalization, Other)
  Sender: FDA-Public Use
  Company Number: GB-ROCHE-1232143

PATIENT
  Age: 80 Year
  Sex: Female

DRUGS (5)
  1. RANIBIZUMAB [Suspect]
     Indication: AGE-RELATED MACULAR DEGENERATION
     Dosage: LAST DOSE PRIOR TO EVENTS:19/AUG/2012
     Route: 050
     Dates: start: 20081013
  2. RANIBIZUMAB [Suspect]
     Route: 050
     Dates: start: 20121228
  3. BENDROFLUMETHIAZIDE [Concomitant]
     Route: 065
     Dates: start: 2007
  4. ATENOLOL [Concomitant]
     Route: 065
     Dates: start: 2007
  5. ATENOLOL [Concomitant]
     Route: 065
     Dates: start: 20120909

REACTIONS (6)
  - Cerebrovascular accident [Unknown]
  - Carotid artery occlusion [Recovering/Resolving]
  - Activated partial thromboplastin time prolonged [Unknown]
  - Blood urea increased [Unknown]
  - Glycosylated haemoglobin increased [Unknown]
  - Blood cholesterol increased [Recovered/Resolved]
